FAERS Safety Report 19684278 (Version 1)
Quarter: 2021Q3

REPORT INFORMATION
  Report Type: Spontaneous
  Country: US (occurrence: US)
  Receive Date: 20210810
  Receipt Date: 20210810
  Transmission Date: 20211014
  Serious: Yes (Other)
  Sender: FDA-Public Use
  Company Number: None

PATIENT
  Age: 38 Year
  Sex: Female
  Weight: 84 kg

DRUGS (5)
  1. KETAMINE [Concomitant]
     Active Substance: KETAMINE
     Dates: start: 20210713, end: 20210723
  2. DULOXETINE. [Suspect]
     Active Substance: DULOXETINE
     Indication: ANXIETY
     Route: 048
  3. ERENUMAB [Suspect]
     Active Substance: ERENUMAB
     Indication: MIGRAINE
     Dosage: ?          OTHER FREQUENCY:MONTHLY;?
     Route: 058
     Dates: start: 20210603, end: 20210810
  4. DULOXETINE. [Suspect]
     Active Substance: DULOXETINE
     Indication: DEPRESSION
     Route: 048
  5. PSEUDOEPHEDRINE. [Concomitant]
     Active Substance: PSEUDOEPHEDRINE HYDROCHLORIDE
     Dates: start: 20210718, end: 20210719

REACTIONS (3)
  - Thunderclap headache [None]
  - Reversible cerebral vasoconstriction syndrome [None]
  - Angiogram cerebral abnormal [None]

NARRATIVE: CASE EVENT DATE: 20210727
